FAERS Safety Report 4875791-6 (Version None)
Quarter: 2006Q1

REPORT INFORMATION
  Report Type: 
  Country: None (occurrence: None)
  Receive Date: 20060104
  Receipt Date: 20051222
  Transmission Date: 20060701
  Serious: No
  Sender: FDA-Public Use
  Company Number: CH-2005-026493

PATIENT
  Age: 17 Year
  Sex: Female
  Weight: 63 kg

DRUGS (1)
  1. YASMIN [Suspect]
     Dosage: ORAL
     Route: 048
     Dates: start: 20040101, end: 20051114

REACTIONS (5)
  - CARCINOID TUMOUR [None]
  - HOT FLUSH [None]
  - PHAEOCHROMOCYTOMA [None]
  - URTICARIA CHOLINERGIC [None]
  - VASODILATATION [None]
